FAERS Safety Report 22650456 (Version 2)
Quarter: 2024Q2

REPORT INFORMATION
  Report Type: Spontaneous
  Country: JP (occurrence: JP)
  Receive Date: 20230628
  Receipt Date: 20240425
  Transmission Date: 20240716
  Serious: Yes (Other)
  Sender: FDA-Public Use
  Company Number: JP-BAYER-2023A086586

PATIENT
  Age: 23 Year
  Sex: Female

DRUGS (1)
  1. IOPAMIRON [Suspect]
     Active Substance: IOPAMIDOL
     Indication: Computerised tomogram
     Dosage: 98ML, ONCE
     Dates: start: 20220926, end: 20220926

REACTIONS (3)
  - Premature labour [Unknown]
  - Premature delivery [Unknown]
  - Maternal exposure during pregnancy [Unknown]
